FAERS Safety Report 7496004-5 (Version None)
Quarter: 2011Q2

REPORT INFORMATION
  Report Type: 
  Country: None (occurrence: None)
  Receive Date: 20110523
  Receipt Date: 20110516
  Transmission Date: 20111010
  Serious: Yes (Other)
  Sender: FDA-Public Use
  Company Number: US-SANOFI-AVENTIS-2011SA031191

PATIENT
  Age: 73 Year
  Sex: Male

DRUGS (18)
  1. WARFARIN SODIUM [Concomitant]
  2. KLOR-CON [Concomitant]
  3. DIGOXIN [Concomitant]
  4. LEVOXYL [Concomitant]
  5. INDAPAMIDE [Concomitant]
  6. VITAMIN E [Concomitant]
  7. COREG [Concomitant]
  8. ASPIRIN [Concomitant]
  9. MULTI-VITAMINS [Concomitant]
  10. LOVAZA [Concomitant]
  11. ZANTAC [Concomitant]
  12. MULTAQ [Suspect]
     Route: 048
     Dates: start: 20110101
  13. ALL OTHER THERAPEUTIC PRODUCTS [Concomitant]
  14. FOLIC ACID [Concomitant]
  15. COENZYME Q10 [Concomitant]
  16. MULTAQ [Suspect]
     Indication: ATRIAL FIBRILLATION
     Dosage: ONE HALF OF A 400MG TABLET TWICE DAILY
     Route: 048
     Dates: start: 20110401
  17. ESTER-C [Concomitant]
  18. VITAMIN D [Concomitant]

REACTIONS (2)
  - ATRIAL FIBRILLATION [None]
  - FLUID RETENTION [None]
